FAERS Safety Report 7468195-3 (Version None)
Quarter: 2011Q2

REPORT INFORMATION
  Report Type: 
  Country: None (occurrence: None)
  Receive Date: 20110509
  Receipt Date: 20110504
  Transmission Date: 20111010
  Serious: Yes (Hospitalization)
  Sender: FDA-Public Use
  Company Number: CA-ABBOTT-11P-028-0723609-00

PATIENT
  Sex: Female
  Weight: 65.83 kg

DRUGS (3)
  1. MEZAVANT [Concomitant]
     Indication: COLITIS ULCERATIVE
     Route: 048
     Dates: start: 20110401
  2. HUMIRA [Suspect]
     Indication: COLITIS ULCERATIVE
     Route: 058
     Dates: start: 20091125, end: 20101101
  3. MESALAMINE [Concomitant]
     Indication: COLITIS ULCERATIVE
     Route: 054
     Dates: start: 20110101

REACTIONS (2)
  - UNEVALUABLE EVENT [None]
  - COLITIS ULCERATIVE [None]
